FAERS Safety Report 5848910-2 (Version None)
Quarter: 2008Q3

REPORT INFORMATION
  Report Type: 
  Country: None (occurrence: None)
  Receive Date: 20080818
  Receipt Date: 20080811
  Transmission Date: 20090109
  Serious: Yes (Other)
  Sender: FDA-Public Use
  Company Number: US-PFIZER INC-2008067445

PATIENT

DRUGS (1)
  1. LIPITOR [Suspect]

REACTIONS (3)
  - ARTHRITIS [None]
  - ASTHENIA [None]
  - PAIN IN EXTREMITY [None]
